FAERS Safety Report 12248940 (Version 4)
Quarter: 2016Q3

REPORT INFORMATION
  Report Type: Spontaneous
  Country: US (occurrence: US)
  Receive Date: 20160408
  Receipt Date: 20160921
  Transmission Date: 20161109
  Serious: Yes (Hospitalization)
  Sender: FDA-Public Use
  Company Number: US-PFIZER INC-2016194462

PATIENT
  Age: 51 Year
  Sex: Female
  Weight: 116.55 kg

DRUGS (9)
  1. LANTUS SOLOSTAR [Concomitant]
     Active Substance: INSULIN GLARGINE
     Indication: DIABETES MELLITUS
     Dosage: 20 IU, 1X/DAY (EACH NIGHT IN HER STOMACH)
     Dates: start: 201608
  2. LYRICA [Suspect]
     Active Substance: PREGABALIN
     Indication: DIABETIC NEUROPATHY
     Dosage: 200 MG, 3X/DAY
     Route: 048
     Dates: start: 2014
  3. LYRICA [Suspect]
     Active Substance: PREGABALIN
     Indication: DIABETIC FOOT
  4. LYRICA [Suspect]
     Active Substance: PREGABALIN
     Indication: GAIT DISTURBANCE
  5. XANAX [Concomitant]
     Active Substance: ALPRAZOLAM
     Indication: NERVE INJURY
     Dosage: 1 MG 6 TIMES A DAY
  6. METFORMIN [Concomitant]
     Active Substance: METFORMIN HYDROCHLORIDE
     Indication: DIABETES MELLITUS
     Dosage: 500 MG, 3X/DAY
  7. SYNTHROID [Concomitant]
     Active Substance: LEVOTHYROXINE SODIUM
     Indication: BASEDOW^S DISEASE
     Dosage: 100.5 MG, UNK
  8. SYNTHROID [Concomitant]
     Active Substance: LEVOTHYROXINE SODIUM
     Dosage: 125 MG, 1X/DAY
  9. SYNTHROID [Concomitant]
     Active Substance: LEVOTHYROXINE SODIUM
     Dosage: 150 MG, 1X/DAY (IN THE MORNING)

REACTIONS (6)
  - Pneumonia [Recovered/Resolved]
  - Sleep apnoea syndrome [Not Recovered/Not Resolved]
  - Asthma [Not Recovered/Not Resolved]
  - Overdose [Unknown]
  - Insomnia [Unknown]
  - Weight increased [Unknown]

NARRATIVE: CASE EVENT DATE: 2014
